FAERS Safety Report 7659805-6 (Version None)
Quarter: 2011Q3

REPORT INFORMATION
  Report Type: 
  Country: None (occurrence: None)
  Receive Date: 20110805
  Receipt Date: 20110801
  Transmission Date: 20111222
  Serious: Yes (Other)
  Sender: FDA-Public Use
  Company Number: PHHY2011IT69374

PATIENT
  Sex: Female

DRUGS (1)
  1. AMOXICILLIN [Suspect]
     Indication: HYPERPYREXIA
     Dosage: 2 G, UNK
     Route: 065
     Dates: start: 20110211, end: 20110215

REACTIONS (2)
  - URTICARIA [None]
  - ANGIOEDEMA [None]
